FAERS Safety Report 12144868 (Version 1)
Quarter: 2016Q1

REPORT INFORMATION
  Report Type: Spontaneous
  Country: US (occurrence: None)
  Receive Date: 20160303
  Receipt Date: 20160303
  Transmission Date: 20160526
  Serious: Yes (Disabling, Other)
  Sender: FDA-Public Use
  Company Number: None

PATIENT
  Age: 56 Year
  Sex: Male
  Weight: 78.47 kg

DRUGS (2)
  1. PREDNISONE. [Suspect]
     Active Substance: PREDNISONE
     Indication: INNER EAR INFLAMMATION
     Dosage: 2 PILLS
     Route: 048
     Dates: start: 20151231, end: 20151231
  2. PREDNISONE. [Suspect]
     Active Substance: PREDNISONE
     Indication: NUCLEAR MAGNETIC RESONANCE IMAGING
     Dosage: 2 PILLS
     Route: 048
     Dates: start: 20151231, end: 20151231

REACTIONS (8)
  - Hyperhidrosis [None]
  - Blood cortisol increased [None]
  - Palpitations [None]
  - Paraesthesia [None]
  - Weight decreased [None]
  - Quality of life decreased [None]
  - Insomnia [None]
  - Anxiety [None]

NARRATIVE: CASE EVENT DATE: 20151231
